FAERS Safety Report 24554649 (Version 1)
Quarter: 2024Q4

REPORT INFORMATION
  Report Type: Spontaneous
  Country: PE (occurrence: PE)
  Receive Date: 20241028
  Receipt Date: 20241028
  Transmission Date: 20250115
  Serious: Yes (Death, Other)
  Sender: BRISTOL-MYERS SQUIBB COMPANY
  Company Number: PE-BRISTOL-MYERS SQUIBB COMPANY-2024-168663

PATIENT
  Age: 30 Year
  Sex: Female

DRUGS (1)
  1. NIVOLUMAB [Suspect]
     Active Substance: NIVOLUMAB
     Indication: Metastatic malignant melanoma

REACTIONS (1)
  - Death [Fatal]

NARRATIVE: CASE EVENT DATE: 20241018
